FAERS Safety Report 5389244-2 (Version None)
Quarter: 2007Q3

REPORT INFORMATION
  Report Type: 
  Country: None (occurrence: None)
  Receive Date: 20070717
  Receipt Date: 20070712
  Transmission Date: 20080115
  Serious: Yes (Hospitalization)
  Sender: FDA-Public Use
  Company Number: A0663701A

PATIENT
  Age: 54 Year
  Sex: Female

DRUGS (13)
  1. LAMICTAL [Suspect]
     Indication: BIPOLAR DISORDER
     Dosage: 200MG VARIABLE DOSE
     Route: 048
     Dates: start: 20070619
  2. CLONAZEPAM [Suspect]
     Dosage: 30TAB PER DAY
  3. INSULIN [Concomitant]
  4. BUPROPION HCL [Concomitant]
  5. METFORMIN HCL [Concomitant]
  6. LISINOPRIL [Concomitant]
  7. VITAMIN [Concomitant]
  8. VITAMIN B COMPLEX CAP [Concomitant]
  9. Q-10 [Concomitant]
  10. CHROMIUM [Concomitant]
  11. LIPITOR [Concomitant]
  12. LEXAPRO [Concomitant]
  13. ASPIRIN [Concomitant]

REACTIONS (7)
  - DEPRESSION [None]
  - FEELING ABNORMAL [None]
  - LOSS OF CONSCIOUSNESS [None]
  - MEMORY IMPAIRMENT [None]
  - OVERDOSE [None]
  - PROTEINURIA [None]
  - SUICIDAL BEHAVIOUR [None]
